FAERS Safety Report 11038982 (Version 1)
Quarter: 2015Q2

REPORT INFORMATION
  Report Type: Spontaneous
  Country: US (occurrence: US)
  Receive Date: 20150416
  Receipt Date: 20150416
  Transmission Date: 20150821
  Serious: Yes (Hospitalization, Other)
  Sender: FDA-Public Use
  Company Number: PHEH2015US005295

PATIENT
  Age: 58 Year
  Sex: Male
  Weight: 127 kg

DRUGS (9)
  1. TEGRETOL [Suspect]
     Active Substance: CARBAMAZEPINE
     Indication: MULTIPLE SCLEROSIS
     Dosage: UNK
     Route: 065
     Dates: start: 2011
  2. LYRICA [Suspect]
     Active Substance: PREGABALIN
     Indication: MULTIPLE SCLEROSIS
     Dosage: 50 MG, UNK
     Route: 048
  3. LYRICA [Suspect]
     Active Substance: PREGABALIN
     Dosage: 75 MG, UNK
     Route: 048
     Dates: start: 2012
  4. LYRICA [Suspect]
     Active Substance: PREGABALIN
     Dosage: 100 MG, UNK
     Route: 048
  5. LYRICA [Suspect]
     Active Substance: PREGABALIN
     Dosage: 150 MG, BID
     Route: 048
  6. LYRICA [Suspect]
     Active Substance: PREGABALIN
     Dosage: 200 MG, UNK
     Route: 048
  7. PRIMIDONE. [Suspect]
     Active Substance: PRIMIDONE
     Indication: MULTIPLE SCLEROSIS
     Dosage: UNK
     Route: 065
     Dates: start: 2011
  8. LYRICA [Suspect]
     Active Substance: PREGABALIN
     Dosage: 200 MG, TID
     Route: 048
  9. LITHIUM. [Suspect]
     Active Substance: LITHIUM
     Indication: PRODUCT USED FOR UNKNOWN INDICATION
     Dosage: 5 DF, QD
     Route: 048

REACTIONS (20)
  - Lower limb fracture [Unknown]
  - Abdominal hernia [Not Recovered/Not Resolved]
  - Loss of consciousness [Unknown]
  - Sleep apnoea syndrome [Unknown]
  - Vomiting [Unknown]
  - Weight fluctuation [Unknown]
  - Synovial cyst [Unknown]
  - Demyelinating polyneuropathy [Unknown]
  - Fall [Unknown]
  - Nephropathy toxic [Unknown]
  - Venom poisoning [Unknown]
  - Renal failure [Unknown]
  - Brain oedema [Unknown]
  - Concussion [Unknown]
  - Pain [Unknown]
  - Meniscus injury [Unknown]
  - Nausea [Unknown]
  - Arthropod sting [Unknown]
  - Thrombosis [Recovered/Resolved]
  - Diarrhoea [Unknown]

NARRATIVE: CASE EVENT DATE: 201204
